FAERS Safety Report 8524755-X (Version None)
Quarter: 2012Q3

REPORT INFORMATION
  Report Type: 
  Country: None (occurrence: None)
  Receive Date: 20120720
  Receipt Date: 20120710
  Transmission Date: 20120928
  Serious: Yes (Other)
  Sender: FDA-Public Use
  Company Number: CH-ELI_LILLY_AND_COMPANY-CH201207003404

PATIENT
  Sex: Female

DRUGS (2)
  1. INSULIN [Concomitant]
  2. HUMULIN N [Suspect]
     Dosage: UNK

REACTIONS (4)
  - SKIN NECROSIS [None]
  - DRUG INEFFECTIVE [None]
  - ERYTHEMA [None]
  - PRODUCT TAMPERING [None]
